FAERS Safety Report 6004084-9 (Version None)
Quarter: 2008Q4

REPORT INFORMATION
  Report Type: 
  Country: None (occurrence: None)
  Receive Date: 20081216
  Receipt Date: 20081215
  Transmission Date: 20090506
  Serious: Yes (Other)
  Sender: FDA-Public Use
  Company Number: US-ASTRAZENECA-2008UW21667

PATIENT
  Age: 37 Year
  Sex: Female
  Weight: 132.4 kg

DRUGS (7)
  1. SYMBICORT [Suspect]
     Route: 055
     Dates: start: 20080719, end: 20080724
  2. NASONEX [Concomitant]
     Indication: RHINITIS
     Route: 045
     Dates: start: 20050413
  3. PROVENTIL-HFA [Concomitant]
     Indication: ASTHMA
  4. NEXIUM [Concomitant]
     Indication: GASTROOESOPHAGEAL REFLUX DISEASE
     Route: 048
  5. XYZAL [Concomitant]
     Indication: RHINITIS
     Dosage: 5 MG DAILY PRN
     Route: 048
     Dates: start: 20080625
  6. SYNTHROID [Concomitant]
     Route: 048
  7. AMBIEN [Concomitant]
     Dosage: 6.25 MG DAILY ORAL PRN

REACTIONS (3)
  - BURNING SENSATION MUCOSAL [None]
  - DYSPNOEA [None]
  - LIP SWELLING [None]
